FAERS Safety Report 6875975-1 (Version None)
Quarter: 2010Q3

REPORT INFORMATION
  Report Type: 
  Country: None (occurrence: None)
  Receive Date: 20100727
  Receipt Date: 20070702
  Transmission Date: 20110219
  Serious: Yes (Other)
  Sender: FDA-Public Use
  Company Number: US-PFIZER INC-2006121893

PATIENT
  Sex: Male
  Weight: 81.6 kg

DRUGS (10)
  1. CELEBREX [Suspect]
     Indication: PAIN
     Dates: start: 20001020, end: 20041122
  2. VIOXX [Suspect]
     Indication: PAIN
     Dosage: 25 OR 50 MILLIGRAMS DAILY.
     Dates: start: 20000801, end: 20001017
  3. ACCUPRIL [Concomitant]
     Dates: start: 20001024, end: 20030208
  4. METOPROLOL SUCCINATE [Concomitant]
     Dates: start: 20001024
  5. LASIX [Concomitant]
     Dates: start: 20001024, end: 20001107
  6. DIGOXIN [Concomitant]
     Dates: start: 20001024, end: 20001124
  7. PLAVIX [Concomitant]
     Dates: start: 20001024, end: 20001107
  8. WARFARIN [Concomitant]
     Dates: start: 20001024, end: 20010101
  9. ACETYLSALICYLIC ACID SRT [Concomitant]
     Dates: start: 20010101
  10. OXYCONTIN [Concomitant]
     Dates: start: 20000902, end: 20010621

REACTIONS (2)
  - ANXIETY [None]
  - DEPRESSION [None]
